FAERS Safety Report 7504615-3 (Version None)
Quarter: 2011Q2

REPORT INFORMATION
  Report Type: 
  Country: None (occurrence: None)
  Receive Date: 20110525
  Receipt Date: 20110525
  Transmission Date: 20111010
  Serious: Yes (Hospitalization)
  Sender: FDA-Public Use
  Company Number: FR-ABBOTT-11P-056-0711344-00

PATIENT
  Sex: Female

DRUGS (7)
  1. MOLSIDOMINE [Concomitant]
     Indication: PRODUCT USED FOR UNKNOWN INDICATION
  2. RABEPRAZOLE SODIUM [Concomitant]
     Indication: PRODUCT USED FOR UNKNOWN INDICATION
  3. ASPIRIN [Concomitant]
     Indication: PRODUCT USED FOR UNKNOWN INDICATION
  4. RAMIPRIL [Concomitant]
     Indication: PRODUCT USED FOR UNKNOWN INDICATION
  5. OXYBUTYNIN [Concomitant]
     Indication: PRODUCT USED FOR UNKNOWN INDICATION
  6. VERCYTE [Suspect]
     Indication: ESSENTIAL THROMBOCYTHAEMIA
     Route: 048
     Dates: start: 20101027, end: 20110116
  7. LOPERAMIDE [Concomitant]
     Indication: PRODUCT USED FOR UNKNOWN INDICATION

REACTIONS (7)
  - ANAEMIA [None]
  - BICYTOPENIA [None]
  - ACUTE CORONARY SYNDROME [None]
  - PALLOR [None]
  - THROMBOCYTOPENIA [None]
  - URINARY TRACT INFECTION [None]
  - DYSPNOEA [None]
